FAERS Safety Report 8109869-0 (Version None)
Quarter: 2012Q1

REPORT INFORMATION
  Report Type: 
  Country: None (occurrence: None)
  Receive Date: 20120202
  Receipt Date: 20120120
  Transmission Date: 20120608
  Serious: No
  Sender: FDA-Public Use
  Company Number: US-AMGEN-USASP2011068807

PATIENT
  Age: 75 Year
  Sex: Female

DRUGS (5)
  1. FOLIC ACID [Concomitant]
     Dosage: 1 MG, QD
  2. ENBREL [Suspect]
     Indication: RHEUMATOID ARTHRITIS
     Dosage: 25 MG, 2 TIMES/WK
     Route: 058
     Dates: start: 20110906
  3. TREXALL [Concomitant]
     Dosage: 2.5 MG, QWK
     Route: 048
     Dates: start: 20020101
  4. NAPROXEN                           /00256202/ [Concomitant]
     Dosage: 500 MG, BID
  5. PREDNISONE TAB [Concomitant]
     Dosage: 5 MG,  DAILY

REACTIONS (1)
  - TACHYCARDIA [None]
